FAERS Safety Report 10159560 (Version 1)
Quarter: 2014Q2

REPORT INFORMATION
  Report Type: Spontaneous
  Country: US (occurrence: None)
  Receive Date: 20140506
  Receipt Date: 20140506
  Transmission Date: 20141212
  Serious: Yes (Death)
  Sender: FDA-Public Use
  Company Number: 2014AP002853

PATIENT
  Age: 76 Year
  Sex: Male
  Weight: 87 kg

DRUGS (3)
  1. FERRIPROX [Suspect]
     Indication: MYELOFIBROSIS
     Route: 048
     Dates: start: 20130602
  2. FERRIPROX [Suspect]
     Indication: HAEMOCHROMATOSIS
     Route: 048
     Dates: start: 20130602
  3. FERRIPROX [Suspect]
     Indication: TRANSFUSION
     Route: 048
     Dates: start: 20130602

REACTIONS (1)
  - Death [None]
